FAERS Safety Report 8078519-4 (Version None)
Quarter: 2012Q1

REPORT INFORMATION
  Report Type: 
  Country: None (occurrence: None)
  Receive Date: 20120124
  Receipt Date: 20120117
  Transmission Date: 20120608
  Serious: Yes (Hospitalization)
  Sender: FDA-Public Use
  Company Number: 2011SP012082

PATIENT
  Age: 30 Year
  Sex: Female
  Weight: 63.5036 kg

DRUGS (6)
  1. NUVARING [Suspect]
     Indication: CONTRACEPTION
     Dates: start: 20050701, end: 20100316
  2. PROVENTIL [Concomitant]
  3. PERCOCET [Concomitant]
  4. LYRICA [Concomitant]
  5. MIDRIN [Concomitant]
  6. TRIAZOLAM [Concomitant]

REACTIONS (35)
  - PNEUMONIA [None]
  - UPPER RESPIRATORY TRACT INFECTION [None]
  - OROPHARYNGEAL PAIN [None]
  - DYSURIA [None]
  - CRUSH INJURY [None]
  - FOLLICULITIS [None]
  - POLLAKIURIA [None]
  - MICTURITION URGENCY [None]
  - BIPOLAR DISORDER [None]
  - HEAD INJURY [None]
  - DRUG SCREEN POSITIVE [None]
  - PRODUCTIVE COUGH [None]
  - CEREBRAL HAEMORRHAGE [None]
  - COUGH [None]
  - DIARRHOEA [None]
  - BRONCHITIS [None]
  - JAW FRACTURE [None]
  - TRAUMATIC HAEMORRHAGE [None]
  - HEADACHE [None]
  - PLEURITIC PAIN [None]
  - SINUSITIS [None]
  - ROAD TRAFFIC ACCIDENT [None]
  - FACIAL BONES FRACTURE [None]
  - FRACTURE DISPLACEMENT [None]
  - COMMINUTED FRACTURE [None]
  - AFFECTIVE DISORDER [None]
  - PAIN THRESHOLD DECREASED [None]
  - HAEMANGIOMA [None]
  - FACIAL PAIN [None]
  - DYSPNOEA [None]
  - FIBROMYALGIA [None]
  - ARTHRALGIA [None]
  - LACERATION [None]
  - PANIC ATTACK [None]
  - DEEP VEIN THROMBOSIS [None]
